FAERS Safety Report 15728764 (Version 1)
Quarter: 2018Q4

REPORT INFORMATION
  Report Type: Spontaneous
  Country: FR (occurrence: FR)
  Receive Date: 20181217
  Receipt Date: 20181217
  Transmission Date: 20190205
  Serious: Yes (Hospitalization)
  Sender: FDA-Public Use
  Company Number: FR-TEVA-2018-FR-988654

PATIENT
  Age: 77 Year
  Sex: Male

DRUGS (7)
  1. SEVOFLURANE. [Suspect]
     Active Substance: SEVOFLURANE
     Indication: GENERAL ANAESTHESIA
     Route: 065
  2. LERCANIDIPINE [Concomitant]
     Active Substance: LERCANIDIPINE
     Dosage: 10 MILLIGRAM DAILY;
  3. BISOPROLOL [Suspect]
     Active Substance: BISOPROLOL
     Dosage: 10 MILLIGRAM DAILY;
     Route: 065
  4. ACETYLSALICYLIC ACID [Concomitant]
     Active Substance: ASPIRIN
     Dosage: 75 MILLIGRAM DAILY;
  5. SPIRONOLACTONE. [Suspect]
     Active Substance: SPIRONOLACTONE
     Indication: PRODUCT USED FOR UNKNOWN INDICATION
     Dosage: 50 MILLIGRAM DAILY;
     Route: 065
  6. REMIFENTANIL [Concomitant]
     Active Substance: REMIFENTANIL
  7. ENALAPRIL [Suspect]
     Active Substance: ENALAPRIL
     Dosage: 20 MILLIGRAM DAILY;
     Route: 065

REACTIONS (2)
  - Cardiac arrest [Recovering/Resolving]
  - Hyperkalaemia [Recovered/Resolved]
